FAERS Safety Report 19416250 (Version 1)
Quarter: 2021Q2

REPORT INFORMATION
  Report Type: Spontaneous
  Country: US (occurrence: US)
  Receive Date: 20210615
  Receipt Date: 20210615
  Transmission Date: 20210717
  Serious: No
  Sender: FDA-Public Use
  Company Number: US-ALLERGAN-2049682US

PATIENT
  Age: 40 Year
  Sex: Female

DRUGS (2)
  1. KYBELLA [Suspect]
     Active Substance: DEOXYCHOLIC ACID
     Indication: FAT TISSUE INCREASED
     Dosage: UNK, SINGLE
     Dates: start: 20200901, end: 20200901
  2. KYBELLA [Suspect]
     Active Substance: DEOXYCHOLIC ACID
     Dosage: UNK, SINGLE
     Dates: start: 20200808, end: 20200808

REACTIONS (4)
  - Skin tightness [Unknown]
  - Off label use [Unknown]
  - Skin laxity [Not Recovered/Not Resolved]
  - Facial pain [Unknown]
